FAERS Safety Report 7880073-4 (Version None)
Quarter: 2011Q4

REPORT INFORMATION
  Report Type: 
  Country: None (occurrence: None)
  Receive Date: 20111101
  Receipt Date: 20111021
  Transmission Date: 20120403
  Serious: Yes (Hospitalization, Other)
  Sender: FDA-Public Use
  Company Number: US-BAYER-2011-050447

PATIENT
  Age: 25 Year
  Sex: Female
  Weight: 50.794 kg

DRUGS (6)
  1. HYDROCODONE BITARTRATE AND ACETAMINOPHEN [Concomitant]
     Indication: PAIN
     Dosage: UNK
     Route: 048
     Dates: start: 20090414
  2. CYCLOPHOSPHAMIDE [Concomitant]
     Indication: MUSCLE SPASMS
     Dosage: 5 MG, TID
     Route: 048
     Dates: start: 20090414
  3. SINGULAIR [Concomitant]
  4. NAPROXEN SODIUM [Concomitant]
     Dosage: 275 MG, TID
     Route: 048
     Dates: start: 20090414
  5. ZEGERID [Concomitant]
  6. YAZ [Suspect]
     Dosage: UNK
     Dates: start: 20080101, end: 20090101

REACTIONS (3)
  - PAIN [None]
  - CHOLECYSTITIS CHRONIC [None]
  - GALLBLADDER DISORDER [None]
